FAERS Safety Report 15438034 (Version 2)
Quarter: 2019Q1

REPORT INFORMATION
  Report Type: Spontaneous
  Country: US (occurrence: US)
  Receive Date: 20180928
  Receipt Date: 20190221
  Transmission Date: 20190417
  Serious: Yes (Other)
  Sender: FDA-Public Use
  Company Number: US-BRISTOL-MYERS SQUIBB COMPANY-BMS-2018-087924

PATIENT
  Age: 78 Year
  Sex: Female

DRUGS (1)
  1. SPRYCEL [Suspect]
     Active Substance: DASATINIB
     Indication: ADVERSE EVENT
     Dosage: 70 MG, QID
     Route: 048
     Dates: start: 20180823

REACTIONS (4)
  - Diarrhoea [Unknown]
  - Headache [Unknown]
  - Myalgia [Unknown]
  - Pneumonia [Unknown]

NARRATIVE: CASE EVENT DATE: 20180901
